FAERS Safety Report 20778832 (Version 1)
Quarter: 2022Q2

REPORT INFORMATION
  Report Type: Spontaneous
  Country: NO (occurrence: NO)
  Receive Date: 20220503
  Receipt Date: 20220503
  Transmission Date: 20220720
  Serious: Yes (Hospitalization)
  Sender: FDA-Public Use
  Company Number: NO-PFIZER INC-202200515143

PATIENT
  Age: 86 Year
  Sex: Female

DRUGS (7)
  1. CITALOPRAM [Interacting]
     Active Substance: CITALOPRAM HYDROBROMIDE
     Indication: Product used for unknown indication
     Dosage: 10 MILLIGRAM, QD, 10 MG, 1X/DAY
  2. VENLAFAXINE HYDROCHLORIDE [Interacting]
     Active Substance: VENLAFAXINE HYDROCHLORIDE
     Indication: Product used for unknown indication
     Dosage: 75 MILLIGRAM, QD, 37.5 MG, 2X/DAY
  3. TRAMADOL HYDROCHLORIDE [Interacting]
     Active Substance: TRAMADOL HYDROCHLORIDE
     Indication: Product used for unknown indication
     Dosage: 50 MILLIGRAM, PRN, (AS NECESSARY)50 MG UP TO 3 TIMES A DAY
  4. HIPREX [Concomitant]
     Active Substance: METHENAMINE HIPPURATE
     Dosage: 2 GRAM, QD, 1 G, 2X/DAY
  5. ESTRIOL [Concomitant]
     Active Substance: ESTRIOL
     Dosage: 1 MILLIGRAM, QD, 1 MG, 1X/DAY
  6. ATACAND [Concomitant]
     Active Substance: CANDESARTAN CILEXETIL
     Dosage: 8 MILLIGRAM, QD, 8 MG, 1X/DAY
  7. ASPIRIN\MAGNESIUM OXIDE [Concomitant]
     Active Substance: ASPIRIN\MAGNESIUM OXIDE
     Dosage: 75 MILLIGRAM, QD, 75 MG, 1X/DAY

REACTIONS (6)
  - Unresponsive to stimuli [Unknown]
  - Pyrexia [Unknown]
  - Tachycardia [Unknown]
  - Hyperhidrosis [Unknown]
  - Coma [Unknown]
  - Drug interaction [Unknown]
